FAERS Safety Report 19099343 (Version 2)
Quarter: 2021Q2

REPORT INFORMATION
  Report Type: Spontaneous
  Country: FI (occurrence: FI)
  Receive Date: 20210406
  Receipt Date: 20210408
  Transmission Date: 20210717
  Serious: Yes (Hospitalization)
  Sender: FDA-Public Use
  Company Number: FI-ASTRAZENECA-2021A239527

PATIENT
  Age: 67 Year
  Sex: Female

DRUGS (9)
  1. LITALGIN [Concomitant]
     Active Substance: PITOFENONE
     Indication: ABDOMINAL PAIN
     Route: 048
     Dates: start: 2019
  2. OLANZAPIN ORION [Suspect]
     Active Substance: OLANZAPINE
     Indication: SCHIZOPHRENIA
     Dosage: 40,MG,DAILY
     Route: 048
     Dates: start: 20190112, end: 20210224
  3. LEVOMEPROMAZINE [Concomitant]
     Active Substance: LEVOMEPROMAZINE
     Route: 048
     Dates: start: 2017
  4. OPAMOX [Concomitant]
     Active Substance: OXAZEPAM
     Route: 048
     Dates: start: 2017
  5. THYROXIN [Concomitant]
     Active Substance: LEVOTHYROXINE
     Dosage: 50,??G,DAILY
     Route: 048
     Dates: start: 2017
  6. KETIPINOR [Suspect]
     Active Substance: QUETIAPINE FUMARATE
     Indication: SCHIZOPHRENIA
     Dosage: 800,MG,DAILY
     Route: 048
     Dates: start: 20170503, end: 20210224
  7. ABSENOR [Concomitant]
     Dosage: 2,G,DAILY
     Route: 048
     Dates: start: 2014
  8. BUPRENORPHINE. [Concomitant]
     Active Substance: BUPRENORPHINE
     Indication: PAIN
     Dates: start: 20210121
  9. FURESIS [Concomitant]
     Active Substance: FUROSEMIDE
     Dosage: 160,MG,DAILY
     Route: 048
     Dates: start: 2019

REACTIONS (1)
  - Neuroleptic malignant syndrome [Recovering/Resolving]

NARRATIVE: CASE EVENT DATE: 20210217
